FAERS Safety Report 9189686 (Version 2)
Quarter: 2013Q3

REPORT INFORMATION
  Report Type: Spontaneous
  Country: US (occurrence: US)
  Receive Date: 20130326
  Receipt Date: 20130722
  Transmission Date: 20140515
  Serious: Yes (Hospitalization, Other)
  Sender: FDA-Public Use
  Company Number: US-BAYER-2013-037532

PATIENT
  Age: 49 Year
  Sex: Female

DRUGS (6)
  1. YAZ [Suspect]
     Indication: ACNE
     Dosage: UNK
     Dates: start: 2001, end: 2003
  2. YASMIN [Suspect]
     Indication: ACNE
     Dosage: UNK
     Dates: start: 2001, end: 2003
  3. TYLENOL WITH CODEINE [Concomitant]
     Indication: PAIN
     Dosage: UNK
     Dates: start: 2001, end: 2003
  4. ALBUTEROL INHALER [Concomitant]
     Indication: ASTHMA
  5. DALMANE [Concomitant]
     Indication: SLEEP DISORDER
     Dosage: UNK
  6. CARISOPRODOL [Concomitant]
     Dosage: UNK

REACTIONS (5)
  - Injury [None]
  - Pain [None]
  - Pain [None]
  - Myocardial infarction [None]
  - Mental disorder [None]
